FAERS Safety Report 21131217 (Version 1)
Quarter: 2022Q3

REPORT INFORMATION
  Report Type: Spontaneous
  Country: US (occurrence: US)
  Receive Date: 20220726
  Receipt Date: 20220726
  Transmission Date: 20221026
  Serious: Yes (Hospitalization, Other)
  Sender: FDA-Public Use
  Company Number: US-PFIZER INC-PV202200023275

PATIENT
  Age: 55 Year
  Sex: Female

DRUGS (2)
  1. METHYLPREDNISOLONE ACETATE [Suspect]
     Active Substance: METHYLPREDNISOLONE ACETATE
     Indication: Interstitial lung disease
     Dosage: 1 G, DAILY
  2. CORTICOSTEROID NOS [Suspect]
     Active Substance: CORTICOSTEROID NOS
     Indication: Interstitial lung disease
     Dosage: UNK

REACTIONS (5)
  - Pneumonia serratia [Recovering/Resolving]
  - Bacteraemia [Recovering/Resolving]
  - Cytomegalovirus viraemia [Recovered/Resolved]
  - Cytomegalovirus colitis [Recovering/Resolving]
  - Drug ineffective [Recovered/Resolved]
